FAERS Safety Report 7941760-2 (Version None)
Quarter: 2011Q4

REPORT INFORMATION
  Report Type: 
  Country: None (occurrence: None)
  Receive Date: 20111128
  Receipt Date: 20111003
  Transmission Date: 20120403
  Serious: No
  Sender: FDA-Public Use
  Company Number: US-BAYER-2011-095726

PATIENT
  Age: 86 Year
  Sex: Female
  Weight: 45 kg

DRUGS (4)
  1. ALENDRONATE SODIUM [Concomitant]
  2. ALEVE (CAPLET) [Suspect]
     Indication: MYALGIA
     Dosage: 1, QD
     Route: 048
  3. OXYGEN [Concomitant]
  4. SPIRIVA [Concomitant]

REACTIONS (1)
  - MYALGIA [None]
